FAERS Safety Report 6380826-8 (Version None)
Quarter: 2009Q3

REPORT INFORMATION
  Report Type: 
  Country: None (occurrence: None)
  Receive Date: 20090929
  Receipt Date: 20090921
  Transmission Date: 20100115
  Serious: Yes (Congenital Anomaly)
  Sender: FDA-Public Use
  Company Number: A0679427A

PATIENT
  Sex: Male

DRUGS (3)
  1. PAXIL [Suspect]
     Dates: start: 20000601, end: 20010117
  2. EFFEXOR [Suspect]
  3. VITAMIN TAB [Concomitant]

REACTIONS (2)
  - CARDIAC DISORDER [None]
  - DRUG EXPOSURE DURING PREGNANCY [None]
